FAERS Safety Report 21507829 (Version 1)
Quarter: 2022Q4

REPORT INFORMATION
  Report Type: Spontaneous
  Country: US (occurrence: US)
  Receive Date: 20221026
  Receipt Date: 20221026
  Transmission Date: 20230113
  Serious: Yes (Hospitalization)
  Sender: FDA-Public Use
  Company Number: US-PFIZER INC-202201249482

PATIENT
  Age: 69 Year
  Sex: Female
  Weight: 68.04 kg

DRUGS (1)
  1. IBRANCE [Suspect]
     Active Substance: PALBOCICLIB
     Indication: Breast cancer
     Dosage: UNK
     Dates: start: 2022

REACTIONS (4)
  - Dehydration [Not Recovered/Not Resolved]
  - Vomiting [Unknown]
  - Dysphagia [Unknown]
  - Weight decreased [Unknown]

NARRATIVE: CASE EVENT DATE: 20221020
